FAERS Safety Report 4809271-0 (Version None)
Quarter: 2005Q4

REPORT INFORMATION
  Report Type: 
  Country: None (occurrence: None)
  Receive Date: 20051025
  Receipt Date: 20051021
  Transmission Date: 20060501
  Serious: Yes (Other)
  Sender: FDA-Public Use
  Company Number: AU-BRISTOL-MYERS SQUIBB COMPANY-13154968

PATIENT
  Age: 64 Year
  Sex: Male

DRUGS (4)
  1. EFAVIRENZ [Suspect]
  2. ATAZANAVIR [Suspect]
  3. TENOFOVIR [Suspect]
  4. LAMIVUDINE [Suspect]

REACTIONS (4)
  - COGNITIVE DISORDER [None]
  - HYPERTENSION [None]
  - KIDNEY FIBROSIS [None]
  - PROTEINURIA [None]
